FAERS Safety Report 9238942 (Version 1)
Quarter: 2013Q2

REPORT INFORMATION
  Report Type: Spontaneous
  Country: GB (occurrence: GB)
  Receive Date: 20130418
  Receipt Date: 20130418
  Transmission Date: 20140414
  Serious: Yes (Other)
  Sender: FDA-Public Use
  Company Number: GB-MERCK-1304GBR007396

PATIENT
  Age: 73 Year
  Sex: Female
  Weight: 82 kg

DRUGS (5)
  1. ZOCOR [Suspect]
     Indication: BLOOD CHOLESTEROL INCREASED
     Dosage: 20 MG, QD- 1/1 DAYS
     Route: 048
     Dates: start: 2002
  2. GARLIC [Concomitant]
     Route: 048
  3. LEVOTHYROXINE SODIUM [Concomitant]
     Dosage: 125 MICROGRAM, UNK
     Route: 048
  4. VITAMINS (UNSPECIFIED) [Concomitant]
     Indication: MENOPAUSE
     Route: 048
  5. TOLTERODINE [Concomitant]
     Dosage: 4 MG, UNK
     Route: 048

REACTIONS (2)
  - Abnormal dreams [Not Recovered/Not Resolved]
  - Sleep disorder [Not Recovered/Not Resolved]
